FAERS Safety Report 22227593 (Version 2)
Quarter: 2023Q2

REPORT INFORMATION
  Report Type: Spontaneous
  Country: US (occurrence: US)
  Receive Date: 20230419
  Receipt Date: 20230425
  Transmission Date: 20230722
  Serious: No
  Sender: FDA-Public Use
  Company Number: US-LUPIN PHARMACEUTICALS INC.-2023-02919

PATIENT

DRUGS (2)
  1. ALBUTEROL SULFATE [Suspect]
     Active Substance: ALBUTEROL SULFATE
     Indication: Asthma
     Dosage: UNK (2 TO 4 PUFFS AS NEEDED)
     Dates: start: 202303
  2. ADVAIR HFA [Concomitant]
     Active Substance: FLUTICASONE PROPIONATE\SALMETEROL XINAFOATE
     Indication: Asthma
     Dosage: UNK
     Route: 065

REACTIONS (5)
  - Cough [Unknown]
  - Dyspnoea [Unknown]
  - Device delivery system issue [Unknown]
  - Wheezing [Unknown]
  - Asthma [Unknown]

NARRATIVE: CASE EVENT DATE: 20230414
